FAERS Safety Report 5236576-4 (Version None)
Quarter: 2007Q1

REPORT INFORMATION
  Report Type: 
  Country: None (occurrence: None)
  Receive Date: 20070208
  Receipt Date: 20070126
  Transmission Date: 20070707
  Serious: Yes (Hospitalization)
  Sender: FDA-Public Use
  Company Number: 2007-00400

PATIENT
  Age: 63 Year
  Sex: Female

DRUGS (6)
  1. FORTAMET [Suspect]
     Indication: DIABETES MELLITUS
     Dosage: 1000 MG, UNK, ORAL
     Route: 048
     Dates: start: 20060601, end: 20060701
  2. METFORMIN HCL [Suspect]
     Indication: DIABETES MELLITUS
     Dosage: 750 MG, UNK, ORAL
     Route: 048
     Dates: start: 20060701
  3. PLAVIX [Concomitant]
  4. IMDUR [Concomitant]
  5. ATENOLOL [Concomitant]
  6. COZAAR [Concomitant]

REACTIONS (6)
  - CONDITION AGGRAVATED [None]
  - DIARRHOEA [None]
  - MYALGIA [None]
  - MYOCARDIAL INFARCTION [None]
  - NAIL DISORDER [None]
  - PAIN [None]
